FAERS Safety Report 8555322-X (Version None)
Quarter: 2012Q3

REPORT INFORMATION
  Report Type: 
  Country: None (occurrence: None)
  Receive Date: 20120731
  Receipt Date: 20111026
  Transmission Date: 20120928
  Serious: No
  Sender: FDA-Public Use
  Company Number: US-ASTRAZENECA-2011SE34796

PATIENT
  Age: 49 Year
  Sex: Male

DRUGS (2)
  1. SEROQUEL [Suspect]
     Indication: ANXIETY
     Dosage: TOTAL DAILY DOSE 200 MG AS REQUIRED
     Route: 048
  2. SEROQUEL [Suspect]
     Indication: DEPRESSION
     Dosage: TOTAL DAILY DOSE 200 MG AS REQUIRED
     Route: 048

REACTIONS (7)
  - DIZZINESS [None]
  - NAUSEA [None]
  - MALAISE [None]
  - ABDOMINAL DISCOMFORT [None]
  - DRUG DOSE OMISSION [None]
  - INFLUENZA [None]
  - DIARRHOEA [None]
